FAERS Safety Report 5499046-4 (Version None)
Quarter: 2007Q4

REPORT INFORMATION
  Report Type: 
  Country: None (occurrence: None)
  Receive Date: 20071026
  Receipt Date: 20070522
  Transmission Date: 20080405
  Serious: No
  Sender: FDA-Public Use
  Company Number: A0652417A

PATIENT
  Age: 82 Year
  Sex: Male

DRUGS (7)
  1. ADVAIR DISKUS 100/50 [Suspect]
     Indication: ASTHMA
     Dosage: 1PUFF PER DAY
     Route: 055
     Dates: start: 20020101
  2. DILTIAZEM [Concomitant]
  3. HYDROCHLOROTHIAZIDE [Concomitant]
  4. ASCORBIC ACID [Concomitant]
  5. ALBUTEROL [Concomitant]
  6. VITAMIN A [Concomitant]
  7. VITAMIN E [Concomitant]

REACTIONS (1)
  - DYSPNOEA [None]
